FAERS Safety Report 9886239 (Version 1)
Quarter: 2014Q1

REPORT INFORMATION
  Report Type: Spontaneous
  Country: US (occurrence: US)
  Receive Date: 20140210
  Receipt Date: 20140210
  Transmission Date: 20141002
  Serious: Yes (Death, Hospitalization, Other)
  Sender: FDA-Public Use
  Company Number: US-ASTRAZENECA-2014SE08684

PATIENT
  Age: 58 Day
  Sex: Male

DRUGS (5)
  1. SYNAGIS [Suspect]
     Route: 030
     Dates: start: 20140116
  2. CAPTOPRIL [Concomitant]
  3. FUROSEMIDE [Concomitant]
  4. ASPIRIN [Concomitant]
  5. LANSOPRAZOLE [Concomitant]

REACTIONS (2)
  - Cardiac arrest [Fatal]
  - Respiratory syncytial virus test positive [Unknown]
